FAERS Safety Report 8605223-3 (Version None)
Quarter: 2012Q3

REPORT INFORMATION
  Report Type: 
  Country: None (occurrence: None)
  Receive Date: 20120820
  Receipt Date: 20120809
  Transmission Date: 20120928
  Serious: Yes (Other)
  Sender: FDA-Public Use
  Company Number: US-US-EMD SERONO, INC.-7154264

PATIENT
  Sex: Female
  Weight: 73 kg

DRUGS (5)
  1. EFFEXOR [Concomitant]
     Indication: DEPRESSION
     Dates: start: 20090101
  2. NAPROXEN SODIUM [Concomitant]
     Indication: BACK PAIN
  3. TEGRETOL [Concomitant]
     Indication: CONVULSION
  4. REBIF [Suspect]
     Indication: PRODUCT USED FOR UNKNOWN INDICATION
     Route: 058
     Dates: start: 20100418, end: 20120208
  5. ARICEPT [Concomitant]
     Indication: MEMORY IMPAIRMENT

REACTIONS (3)
  - SUICIDAL IDEATION [None]
  - LUMBAR SPINAL STENOSIS [None]
  - NASOPHARYNGITIS [None]
